FAERS Safety Report 20635337 (Version 2)
Quarter: 2022Q2

REPORT INFORMATION
  Report Type: Report from Study
  Country: US (occurrence: None)
  Receive Date: 20220325
  Receipt Date: 20220407
  Transmission Date: 20220721
  Serious: Yes (Hospitalization)
  Sender: FDA-Public Use
  Company Number: US-Ultragenyx Pharmaceutical Inc.-US-UGNX-22-00146

PATIENT
  Age: 6 Year
  Sex: Male
  Weight: 20.4 kg

DRUGS (5)
  1. DOJOLVI [Suspect]
     Active Substance: TRIHEPTANOIN
     Indication: Very long-chain acyl-coenzyme A dehydrogenase deficiency
     Route: 048
     Dates: end: 20220309
  2. DOJOLVI [Suspect]
     Active Substance: TRIHEPTANOIN
     Indication: Carnitine palmitoyltransferase deficiency
     Route: 048
     Dates: start: 20220309, end: 20220310
  3. DOJOLVI [Suspect]
     Active Substance: TRIHEPTANOIN
     Route: 048
     Dates: start: 20220311
  4. LEVOCARNITINE [Concomitant]
     Active Substance: LEVOCARNITINE
     Indication: Product used for unknown indication
     Dosage: 1G/10ML SOLUTION
  5. MULTIVITAMINS TABLET [Concomitant]
     Indication: Product used for unknown indication

REACTIONS (5)
  - Gastroenteritis viral [Recovered/Resolved]
  - Blood creatine phosphokinase increased [Recovered/Resolved]
  - Vomiting [Unknown]
  - Somnolence [Unknown]
  - Crying [Unknown]

NARRATIVE: CASE EVENT DATE: 20220309
